FAERS Safety Report 11528056 (Version 1)
Quarter: 2015Q3

REPORT INFORMATION
  Report Type: Report from Study
  Country: BR (occurrence: BR)
  Receive Date: 20150921
  Receipt Date: 20150921
  Transmission Date: 20151125
  Serious: Yes (Other)
  Sender: FDA-Public Use
  Company Number: BR-ABBVIE-15K-020-1334313-00

PATIENT
  Age: 60 Year
  Sex: Female
  Weight: 43 kg

DRUGS (1)
  1. HUMIRA [Suspect]
     Active Substance: ADALIMUMAB
     Indication: RHEUMATOID ARTHRITIS
     Route: 058

REACTIONS (7)
  - Patella fracture [Recovering/Resolving]
  - Joint swelling [Recovering/Resolving]
  - Fall [Recovering/Resolving]
  - Pruritus [Recovering/Resolving]
  - Gait disturbance [Recovering/Resolving]
  - Arthralgia [Recovering/Resolving]
  - Forearm fracture [Recovering/Resolving]

NARRATIVE: CASE EVENT DATE: 20141105
